FAERS Safety Report 22136974 (Version 4)
Quarter: 2024Q4

REPORT INFORMATION
  Report Type: Report from Study
  Country: US (occurrence: US)
  Receive Date: 20230324
  Receipt Date: 20241009
  Transmission Date: 20250115
  Serious: Yes (Other)
  Sender: NOVARTIS
  Company Number: US-002147023-NVSC2023US062981

PATIENT
  Age: 52 Year
  Sex: Female

DRUGS (1)
  1. KESIMPTA [Suspect]
     Active Substance: OFATUMUMAB
     Indication: Multiple sclerosis
     Dosage: UNK
     Route: 065
     Dates: start: 20230221

REACTIONS (9)
  - Progressive multiple sclerosis [Unknown]
  - Gait disturbance [Unknown]
  - Balance disorder [Unknown]
  - Gait disturbance [Recovered/Resolved]
  - Influenza like illness [Unknown]
  - Pain [Unknown]
  - Chills [Unknown]
  - Temperature intolerance [Unknown]
  - Weight increased [Unknown]

NARRATIVE: CASE EVENT DATE: 20230221
